FAERS Safety Report 5965364-6 (Version None)
Quarter: 2008Q4

REPORT INFORMATION
  Report Type: 
  Country: None (occurrence: None)
  Receive Date: 20081119
  Receipt Date: 20081104
  Transmission Date: 20090506
  Serious: Yes (Life-Threatening, Hospitalization)
  Sender: FDA-Public Use
  Company Number: 2008S1016824

PATIENT
  Age: 22 Year
  Sex: Male

DRUGS (3)
  1. ETOPOSIDE [Suspect]
     Indication: GERM CELL CANCER
  2. CISPLATIN [Suspect]
     Indication: GERM CELL CANCER
  3. BLEOMYCIN SULFATE [Suspect]
     Indication: GERM CELL CANCER

REACTIONS (6)
  - CAROTID ARTERY THROMBOSIS [None]
  - CEREBRAL ARTERY THROMBOSIS [None]
  - CEREBRAL INFARCTION [None]
  - ELECTROCARDIOGRAM ST SEGMENT ELEVATION [None]
  - PERICARDITIS [None]
  - TROPONIN INCREASED [None]
